FAERS Safety Report 9157270 (Version 1)
Quarter: 2013Q1

REPORT INFORMATION
  Report Type: Spontaneous
  Country: US (occurrence: None)
  Receive Date: 20130308
  Receipt Date: 20130308
  Transmission Date: 20140127
  Serious: Yes (Death)
  Sender: FDA-Public Use
  Company Number: UTC-029878

PATIENT
  Age: 61 Year
  Sex: Female

DRUGS (11)
  1. REMODULIN (10 MILLIGRAM/MILLILITERS, INJECTION FOR INFUSION) (TREPROSTINIL SODIUM) [Suspect]
     Indication: PULMONARY ARTERIAL HYPERTENSION
     Dosage: 129.6 UG/KG (0.09 UG/KG, 1 IN 1 MIN), SUBCUTANEOUS
     Route: 058
     Dates: start: 20120110
  2. FENTANYL [Suspect]
  3. LEXAPRO (ESCITALOPRAM OXALATE) [Concomitant]
  4. SPIRONOLACTONE [Concomitant]
  5. FUROSEMIDE [Concomitant]
  6. SIMVASTATIN [Concomitant]
  7. ECHINACEA PURPUREA [Concomitant]
  8. CALCIUM CITRATE [Concomitant]
  9. HYDROCODONE [Concomitant]
  10. VITAMIN C [Concomitant]
  11. VITAMIN E (TOCOPHEROL) [Concomitant]

REACTIONS (1)
  - Death [None]
